FAERS Safety Report 4560995-2 (Version None)
Quarter: 2005Q1

REPORT INFORMATION
  Report Type: 
  Country: None (occurrence: None)
  Receive Date: 20050126
  Receipt Date: 20040526
  Transmission Date: 20050727
  Serious: No
  Sender: FDA-Public Use
  Company Number: US-BRISTOL-MYERS SQUIBB COMPANY-12597480

PATIENT
  Age: 7 Decade
  Sex: Female

DRUGS (4)
  1. GLUCOPHAGE [Suspect]
     Indication: DIABETES MELLITUS
     Route: 048
  2. ZOCOR [Concomitant]
  3. PRINZIDE [Concomitant]
  4. VOLTAREN [Concomitant]

REACTIONS (4)
  - ANAEMIA [None]
  - EOSINOPHILIA [None]
  - LEUKOCYTOSIS [None]
  - THROMBOCYTOPENIA [None]
